FAERS Safety Report 5562682-0 (Version None)
Quarter: 2007Q4

REPORT INFORMATION
  Report Type: 
  Country: None (occurrence: None)
  Receive Date: 20071217
  Receipt Date: 20071212
  Transmission Date: 20080405
  Serious: Yes (Hospitalization)
  Sender: FDA-Public Use
  Company Number: FR-BRISTOL-MYERS SQUIBB COMPANY-14011969

PATIENT
  Sex: Male

DRUGS (4)
  1. REYATAZ [Suspect]
  2. EFAVIRENZ [Suspect]
  3. NORVIR [Suspect]
  4. TRUVADA [Suspect]

REACTIONS (1)
  - ANGIOEDEMA [None]
